FAERS Safety Report 8102844-1 (Version None)
Quarter: 2012Q1

REPORT INFORMATION
  Report Type: 
  Country: None (occurrence: None)
  Receive Date: 20120201
  Receipt Date: 20120118
  Transmission Date: 20120608
  Serious: Yes (Other)
  Sender: FDA-Public Use
  Company Number: AU-MYLANLABS-2012S1001407

PATIENT
  Age: 33 Year
  Sex: Female

DRUGS (4)
  1. ASPIRIN [Concomitant]
  2. METFORMIN HCL [Suspect]
     Indication: INSULIN RESISTANCE
     Dates: start: 20090101
  3. PREDNISOLONE [Concomitant]
  4. ENOXAPARIN SODIUM [Concomitant]

REACTIONS (2)
  - INFERTILITY FEMALE [None]
  - ABORTION SPONTANEOUS [None]
